FAERS Safety Report 8921580 (Version 1)
Quarter: 2012Q4

REPORT INFORMATION
  Report Type: Report from Study
  Country: CA (occurrence: CA)
  Receive Date: 20121121
  Receipt Date: 20121121
  Transmission Date: 20130627
  Serious: Yes (Hospitalization)
  Sender: FDA-Public Use
  Company Number: CA-JNJFOC-20121106620

PATIENT
  Age: 82 Year
  Sex: Female
  Weight: 95.5 kg

DRUGS (15)
  1. REMICADE [Suspect]
     Indication: CROHN^S DISEASE
     Route: 042
     Dates: start: 20100812
  2. OXAZEPAM [Concomitant]
     Route: 065
  3. PREDNISONE [Concomitant]
     Route: 065
  4. RAMIPRIL [Concomitant]
     Route: 065
  5. SIMVASTATIN [Concomitant]
     Route: 065
  6. LOSEC [Concomitant]
     Route: 065
  7. DILTIAZEM CD [Concomitant]
     Route: 065
  8. HUMALOG MIX [Concomitant]
     Dosage: 25u
     Route: 065
  9. AMITRIPTYLINE [Concomitant]
     Route: 065
  10. FERROUS SULPHATE [Concomitant]
     Route: 065
  11. VITAMIN B12 [Concomitant]
     Route: 065
  12. METFORMIN [Concomitant]
     Route: 065
  13. HYDROCHLOROTHIAZIDE [Concomitant]
     Route: 065
  14. TERAZOSIN [Concomitant]
     Route: 065
  15. IMURAN [Concomitant]
     Route: 065

REACTIONS (1)
  - Pulmonary embolism [Recovering/Resolving]
